FAERS Safety Report 5340565-9 (Version None)
Quarter: 2007Q2

REPORT INFORMATION
  Report Type: 
  Country: None (occurrence: None)
  Receive Date: 20070531
  Receipt Date: 20070521
  Transmission Date: 20071010
  Serious: Yes (Hospitalization, Other)
  Sender: FDA-Public Use
  Company Number: US-PFIZER INC-2007031925

PATIENT
  Sex: Female
  Weight: 77.1 kg

DRUGS (6)
  1. SUTENT [Suspect]
     Indication: RENAL CELL CARCINOMA STAGE UNSPECIFIED
     Route: 048
  2. SYNTHROID [Concomitant]
  3. ACTONEL [Concomitant]
  4. WARFARIN SODIUM [Concomitant]
  5. LIPITOR [Concomitant]
  6. DIOVAN [Concomitant]

REACTIONS (5)
  - CELLULITIS [None]
  - PYODERMA GANGRENOSUM [None]
  - ULCER [None]
  - VASCULITIS [None]
  - WOUND [None]
